FAERS Safety Report 5242046-X (Version None)
Quarter: 2007Q1

REPORT INFORMATION
  Report Type: 
  Country: None (occurrence: None)
  Receive Date: 20070212
  Receipt Date: 20070202
  Transmission Date: 20070707
  Serious: Yes (Hospitalization, Other)
  Sender: FDA-Public Use
  Company Number: 2006SP005304

PATIENT
  Age: 79 Year
  Sex: Male
  Weight: 76.2043 kg

DRUGS (1)
  1. ASMANEX TWISTHALER [Suspect]
     Indication: DRUG USE FOR UNKNOWN INDICATION
     Dosage: 2 DF; QD; PO
     Route: 048

REACTIONS (2)
  - LUNG INFECTION [None]
  - THERAPEUTIC PRODUCT CONTAMINATION [None]
